FAERS Safety Report 22279972 (Version 2)
Quarter: 2023Q2

REPORT INFORMATION
  Report Type: Spontaneous
  Country: US (occurrence: US)
  Receive Date: 20230503
  Receipt Date: 20230623
  Transmission Date: 20230722
  Serious: No
  Sender: FDA-Public Use
  Company Number: US-SA-SAC20230502000652

PATIENT
  Age: 52 Year
  Sex: Male
  Weight: 89.26 kg

DRUGS (2)
  1. SARCLISA [Suspect]
     Active Substance: ISATUXIMAB-IRFC
     Indication: Plasma cell myeloma in remission
     Dosage: 20 MG/ML, QOW (500MG/25ML, EVERY OTHER WEEK)
     Route: 041
     Dates: start: 20220505
  2. SARCLISA [Suspect]
     Active Substance: ISATUXIMAB-IRFC
     Dosage: 20 MG/ML, QOW (100MG/5ML, EVERY OTHER WEEK)
     Route: 041

REACTIONS (2)
  - Weight increased [Unknown]
  - Product dose omission issue [Unknown]

NARRATIVE: CASE EVENT DATE: 20230428
